FAERS Safety Report 22650173 (Version 1)
Quarter: 2023Q2

REPORT INFORMATION
  Report Type: Spontaneous
  Country: US (occurrence: None)
  Receive Date: 20230627
  Receipt Date: 20230627
  Transmission Date: 20230721
  Serious: Yes (Disabling)
  Sender: FDA-Public Use
  Company Number: None

PATIENT
  Age: 48 Year
  Sex: Female
  Weight: 72.57 kg

DRUGS (7)
  1. SUBOXONE [Suspect]
     Active Substance: BUPRENORPHINE HYDROCHLORIDE\NALOXONE HYDROCHLORIDE
     Indication: Substance abuse
     Dates: start: 20070103, end: 20180601
  2. SUBOXONE [Suspect]
     Active Substance: BUPRENORPHINE HYDROCHLORIDE\NALOXONE HYDROCHLORIDE
     Indication: Pain
  3. EFFEXOR XR [Concomitant]
     Active Substance: VENLAFAXINE HYDROCHLORIDE
  4. NEXIUM [Concomitant]
     Active Substance: ESOMEPRAZOLE MAGNESIUM
  5. GABAPENTIN [Concomitant]
     Active Substance: GABAPENTIN
  6. VISTARIL [Concomitant]
     Active Substance: HYDROXYZINE PAMOATE
  7. One-A-Day Multiple Vitamins [Concomitant]

REACTIONS (20)
  - Tooth loss [None]
  - Fracture [None]
  - Nervous system disorder [None]
  - Hypersomnia [None]
  - Fall [None]
  - Oedema [None]
  - Insomnia [None]
  - Mental disorder [None]
  - Mental disorder [None]
  - Incorrect product administration duration [None]
  - Fear [None]
  - Mental disorder [None]
  - Aphasia [None]
  - Learning disability [None]
  - Dyslexia [None]
  - Psychomotor retardation [None]
  - Post-traumatic stress disorder [None]
  - Major depression [None]
  - Generalised anxiety disorder [None]
  - Speech disorder [None]

NARRATIVE: CASE EVENT DATE: 20180103
